FAERS Safety Report 25926194 (Version 1)
Quarter: 2025Q4

REPORT INFORMATION
  Report Type: Spontaneous
  Country: US (occurrence: None)
  Receive Date: 20251015
  Receipt Date: 20251015
  Transmission Date: 20260117
  Serious: Yes (Hospitalization)
  Sender: FDA-CTU
  Company Number: None

PATIENT
  Sex: Male

DRUGS (2)
  1. NOVOSEVEN RT [Suspect]
     Active Substance: COAGULATION FACTOR VIIA RECOMBINANT HUMAN
     Indication: Factor VIII deficiency
     Dosage: 8  MG AS NEEEDED INTRAVENUS
     Route: 042
     Dates: start: 20240529
  2. HEMLIBRA [Concomitant]
     Active Substance: EMICIZUMAB-KXWH

REACTIONS (1)
  - Skin haemorrhage [None]
